FAERS Safety Report 4751907-7 (Version None)
Quarter: 2005Q3

REPORT INFORMATION
  Report Type: 
  Country: None (occurrence: None)
  Receive Date: 20050822
  Receipt Date: 20050606
  Transmission Date: 20060218
  Serious: No
  Sender: FDA-Public Use
  Company Number: PHEH2005US05763

PATIENT
  Age: 71 Year
  Sex: Male
  Weight: 69.8 kg

DRUGS (6)
  1. ZELNORM [Suspect]
     Indication: CONSTIPATION
     Dosage: QD, ORAL
     Route: 048
     Dates: start: 20050517
  2. KETEK [Concomitant]
  3. BROMPHENIRAMINE [Concomitant]
  4. SINEMET [Concomitant]
  5. CLONOPIN (CLONAZEPAM) [Concomitant]
  6. FLOMAX ^BOEHRINGER INGELHEIM^ (TAMSULOSIN HYDROCHLORIDE) [Concomitant]

REACTIONS (2)
  - PRE-EXISTING CONDITION IMPROVED [None]
  - THERAPEUTIC RESPONSE UNEXPECTED [None]
